FAERS Safety Report 14800939 (Version 2)
Quarter: 2018Q2

REPORT INFORMATION
  Report Type: Report from Study
  Country: DE (occurrence: DE)
  Receive Date: 20180424
  Receipt Date: 20180522
  Transmission Date: 20180711
  Serious: Yes (Hospitalization)
  Sender: FDA-Public Use
  Company Number: DE-TEVA-2018-DE-885068

PATIENT
  Sex: Male
  Weight: 96 kg

DRUGS (3)
  1. DOCETAXEL. [Suspect]
     Active Substance: DOCETAXEL
     Indication: HORMONE-REFRACTORY PROSTATE CANCER
     Route: 042
     Dates: start: 20170509
  2. XGEVA [Suspect]
     Active Substance: DENOSUMAB
     Indication: PROSTATE CANCER METASTATIC
     Dosage: DAILY DOSE: 120 MG MILLIGRAM(S) EVERY MONTH
     Route: 058
     Dates: start: 20170509
  3. LUTRATE [Suspect]
     Active Substance: LEUPROLIDE ACETATE
     Indication: PROSTATE CANCER
     Dosage: DAILY DOSE: 22.5 MG MILLIGRAM(S) EVERY 3 MONTH
     Route: 058
     Dates: start: 20170509

REACTIONS (2)
  - Intentional product use issue [Recovered/Resolved]
  - Wound infection staphylococcal [Recovered/Resolved]

NARRATIVE: CASE EVENT DATE: 20170518
